FAERS Safety Report 8190383-1 (Version None)
Quarter: 2012Q1

REPORT INFORMATION
  Report Type: 
  Country: None (occurrence: None)
  Receive Date: 20120305
  Receipt Date: 20120222
  Transmission Date: 20120608
  Serious: Yes (Other)
  Sender: FDA-Public Use
  Company Number: 2012AP000494

PATIENT
  Age: 71 Year
  Sex: Female
  Weight: 71.2147 kg

DRUGS (5)
  1. ATENOLOL [Concomitant]
  2. TRIAMTERENE AND HYDROCHLOROTHIAZID [Concomitant]
  3. OMEPRAZOLE MAGNESIUM [Suspect]
     Indication: GASTROOESOPHAGEAL REFLUX DISEASE
     Dosage: 20.6 MG;QD;
  4. LATANOPROST [Suspect]
     Indication: GLAUCOMA
     Dosage: 1 GTT;QD;OPH
     Route: 047
     Dates: start: 20120101
  5. LATANOPROST [Concomitant]

REACTIONS (2)
  - CONDITION AGGRAVATED [None]
  - GASTROOESOPHAGEAL REFLUX DISEASE [None]
